FAERS Safety Report 24557832 (Version 1)
Quarter: 2024Q4

REPORT INFORMATION
  Report Type: Spontaneous
  Country: US (occurrence: US)
  Receive Date: 20241028
  Receipt Date: 20241028
  Transmission Date: 20250114
  Serious: Yes (Other)
  Sender: MERCK
  Company Number: US-009507513-2410USA009947

PATIENT
  Sex: Female

DRUGS (1)
  1. BRIDION [Suspect]
     Active Substance: SUGAMMADEX
     Dosage: UNK, ONCE
     Dates: start: 2022, end: 2022

REACTIONS (2)
  - Anaphylactic reaction [Recovered/Resolved]
  - Airway peak pressure increased [Recovered/Resolved]

NARRATIVE: CASE EVENT DATE: 20220101
